FAERS Safety Report 7952473-5 (Version None)
Quarter: 2011Q4

REPORT INFORMATION
  Report Type: 
  Country: None (occurrence: None)
  Receive Date: 20111201
  Receipt Date: 20111117
  Transmission Date: 20120403
  Serious: Yes (Death, Hospitalization, Other)
  Sender: FDA-Public Use
  Company Number: US-WATSON-2011-19874

PATIENT
  Age: 40 Year
  Sex: Male

DRUGS (2)
  1. PREDNISONE TAB [Suspect]
     Indication: IMMUNOSUPPRESSANT DRUG THERAPY
     Dosage: ^HIGH DOSES^
     Route: 065
  2. AZATHIOPRINE [Suspect]
     Indication: IMMUNOSUPPRESSANT DRUG THERAPY
     Dosage: 2 - 3 MG/KG
     Route: 065

REACTIONS (4)
  - EYE INFECTION BACTERIAL [None]
  - SUBCUTANEOUS ABSCESS [None]
  - LUNG ABSCESS [None]
  - NOCARDIOSIS [None]
